FAERS Safety Report 24811640 (Version 1)
Quarter: 2025Q1

REPORT INFORMATION
  Report Type: Spontaneous
  Country: GB (occurrence: GB)
  Receive Date: 20250106
  Receipt Date: 20250106
  Transmission Date: 20250409
  Serious: Yes (Other)
  Sender: MERCK
  Company Number: None

PATIENT
  Age: 66 Year
  Sex: Female
  Weight: 57 kg

DRUGS (17)
  1. ERTAPENEM SODIUM [Suspect]
     Active Substance: ERTAPENEM SODIUM
     Indication: Osteonecrosis of jaw
     Dosage: 1 GRAM, QD
  2. TEICOPLANIN [Suspect]
     Active Substance: TEICOPLANIN
     Indication: Osteonecrosis of jaw
  3. CALCIUM CARBONATE\CHOLECALCIFEROL [Concomitant]
     Active Substance: CALCIUM CARBONATE\CHOLECALCIFEROL
  4. ASPIRIN [Concomitant]
     Active Substance: ASPIRIN
  5. ATORVASTATIN [Concomitant]
     Active Substance: ATORVASTATIN
  6. BISOPROLOL [Concomitant]
     Active Substance: BISOPROLOL
  7. NORTRIPTYLINE [Concomitant]
     Active Substance: NORTRIPTYLINE
  8. OMEPRAZOLE [Concomitant]
     Active Substance: OMEPRAZOLE
  9. SERTRALINE [Concomitant]
     Active Substance: SERTRALINE HYDROCHLORIDE
  10. SOLIFENACIN [Concomitant]
     Active Substance: SOLIFENACIN
  11. ACETAMINOPHEN [Concomitant]
     Active Substance: ACETAMINOPHEN
  12. TIOTROPIUM BROMIDE [Concomitant]
     Active Substance: TIOTROPIUM BROMIDE
  13. PREDNISOLONE [Concomitant]
     Active Substance: PREDNISOLONE
  14. FEXOFENADINE [Concomitant]
     Active Substance: FEXOFENADINE HYDROCHLORIDE
  15. CODEINE [Concomitant]
     Active Substance: CODEINE
  16. OESTRIOL [Concomitant]
  17. ALBUTEROL [Concomitant]
     Active Substance: ALBUTEROL

REACTIONS (10)
  - Mobility decreased [Recovering/Resolving]
  - Hypertonia [Recovering/Resolving]
  - Parkinsonism [Recovering/Resolving]
  - Cognitive disorder [Recovering/Resolving]
  - Hyperreflexia [Recovering/Resolving]
  - Reduced facial expression [Recovering/Resolving]
  - Tardive dyskinesia [Recovering/Resolving]
  - Tremor [Recovering/Resolving]
  - Fall [Recovering/Resolving]
  - Reflexes abnormal [Recovering/Resolving]
